FAERS Safety Report 18355078 (Version 1)
Quarter: 2020Q4

REPORT INFORMATION
  Report Type: Spontaneous
  Country: US (occurrence: US)
  Receive Date: 20201006
  Receipt Date: 20201006
  Transmission Date: 20210114
  Serious: Yes (Hospitalization)
  Sender: FDA-Public Use
  Company Number: None

PATIENT
  Sex: Male

DRUGS (32)
  1. ADVAIR DISKU [Concomitant]
  2. CETIRIZINE [Concomitant]
     Active Substance: CETIRIZINE HYDROCHLORIDE
  3. TRAZODONE [Concomitant]
     Active Substance: TRAZODONE HYDROCHLORIDE
  4. APAP/CODEINE [Concomitant]
     Active Substance: ACETAMINOPHEN\CODEINE PHOSPHATE
  5. BENZONATATE. [Concomitant]
     Active Substance: BENZONATATE
  6. CYCLOBENZAPR [Concomitant]
     Active Substance: CYCLOBENZAPRINE
  7. LANTUS [Concomitant]
     Active Substance: INSULIN GLARGINE
  8. METHYLPRED [Concomitant]
     Active Substance: METHYLPREDNISOLONE
  9. OXYCODONE [Concomitant]
     Active Substance: OXYCODONE
  10. POLYETH GLYC [Concomitant]
     Active Substance: POLYETHYLENE GLYCOLS
  11. ATORVASTATIN [Concomitant]
     Active Substance: ATORVASTATIN
  12. DOXYCYCL HYC [Concomitant]
  13. SUMATRIPTAN. [Concomitant]
     Active Substance: SUMATRIPTAN
  14. VENTOLIN HFA [Concomitant]
     Active Substance: ALBUTEROL SULFATE
  15. ELIQUIS [Concomitant]
     Active Substance: APIXABAN
  16. NYSTATIN. [Concomitant]
     Active Substance: NYSTATIN
  17. PENICILLIN VK [Concomitant]
     Active Substance: PENICILLIN V POTASSIUM
  18. APAP/CODEINE [Concomitant]
     Active Substance: ACETAMINOPHEN\CODEINE PHOSPHATE
  19. LIDOCAINE. [Concomitant]
     Active Substance: LIDOCAINE
  20. PANTOPRAZOLE [Concomitant]
     Active Substance: PANTOPRAZOLE
  21. VERAPAMIL [Concomitant]
     Active Substance: VERAPAMIL HYDROCHLORIDE
  22. ACETAMIN [Concomitant]
     Active Substance: ACETAMINOPHEN
  23. FLECAINIDE [Concomitant]
     Active Substance: FLECAINIDE
  24. GABAPENTIN. [Concomitant]
     Active Substance: GABAPENTIN
  25. LATANOPROST. [Concomitant]
     Active Substance: LATANOPROST
  26. NARCAN [Concomitant]
     Active Substance: NALOXONE HYDROCHLORIDE
  27. VITAMIN D [Concomitant]
     Active Substance: VITAMIN D NOS
  28. ESBRIET [Suspect]
     Active Substance: PIRFENIDONE
     Indication: IDIOPATHIC PULMONARY FIBROSIS
     Route: 048
     Dates: start: 20190830
  29. LOSARTAN POT [Concomitant]
     Active Substance: LOSARTAN POTASSIUM
  30. MI-ACID GAS CHW [Concomitant]
  31. SENNA [Concomitant]
     Active Substance: SENNA LEAF\SENNOSIDES\SENNOSIDES A AND B
  32. SOTALOL HCL [Concomitant]
     Active Substance: SOTALOL

REACTIONS (2)
  - Dyspnoea [None]
  - Therapy interrupted [None]
